FAERS Safety Report 4362814-6 (Version None)
Quarter: 2004Q2

REPORT INFORMATION
  Report Type: 
  Country: None (occurrence: None)
  Receive Date: 20040518
  Receipt Date: 20040506
  Transmission Date: 20050107
  Serious: Yes (Hospitalization)
  Sender: FDA-Public Use
  Company Number: 2004030948

PATIENT
  Age: 15 Year
  Sex: Female
  Weight: 80 kg

DRUGS (2)
  1. GEODON [Suspect]
     Indication: SCHIZOPHRENIA
     Dosage: ORAL
     Route: 048
     Dates: start: 20040101, end: 20040501
  2. RANITIDINE HYDROCHLORIDE [Concomitant]

REACTIONS (4)
  - DYSPNOEA [None]
  - FIBRIN D DIMER INCREASED [None]
  - HEART RATE INCREASED [None]
  - PULMONARY EMBOLISM [None]
